FAERS Safety Report 11673506 (Version 1)
Quarter: 2015Q4

REPORT INFORMATION
  Report Type: Spontaneous
  Country: US (occurrence: None)
  Receive Date: 20151027
  Receipt Date: 20151027
  Transmission Date: 20160304
  Serious: No
  Sender: FDA-Public Use
  Company Number: None

PATIENT
  Age: 67 Year
  Sex: Female
  Weight: 59.88 kg

DRUGS (11)
  1. CLONIDINE (CATAPRES) [Concomitant]
  2. COENZYME Q10 (COQ-10) [Concomitant]
  3. CETIRIZINE (ZYRTEC) [Concomitant]
  4. TRIAMTERENE-HYDROCHLOROTHIAZIDE (MAXZIDE) [Concomitant]
  5. ALTACE [Concomitant]
     Active Substance: RAMIPRIL
  6. CARVEDILOL (COREG) [Concomitant]
  7. POTASSIUM CHLORIDE. [Concomitant]
     Active Substance: POTASSIUM CHLORIDE
  8. MAGNESIUM OXIDE (MAG-OX) [Concomitant]
  9. IBUPROFEN (ADVIL) [Concomitant]
  10. HARVONI [Suspect]
     Active Substance: LEDIPASVIR\SOFOSBUVIR
     Indication: HEPATITIS C
     Dosage: 1 TABLET  QD  ORAL?DATES OF USE: 12
     Route: 048
  11. ASPIRIN 81MG [Concomitant]
     Active Substance: ASPIRIN

REACTIONS (1)
  - Dysphonia [None]

NARRATIVE: CASE EVENT DATE: 20151023
